FAERS Safety Report 11334674 (Version 1)
Quarter: 2015Q3

REPORT INFORMATION
  Report Type: Spontaneous
  Country: US (occurrence: None)
  Receive Date: 20150731
  Receipt Date: 20150731
  Transmission Date: 20151125
  Serious: No
  Sender: FDA-Public Use
  Company Number: None

PATIENT
  Age: 19 Year
  Sex: Male

DRUGS (8)
  1. SENNA [Concomitant]
     Active Substance: SENNA LEAF\SENNOSIDES\SENNOSIDES A AND B
  2. BISACODYL. [Concomitant]
     Active Substance: BISACODYL
  3. DOCUSATE [Concomitant]
     Active Substance: DOCUSATE
  4. FENTANYL. [Concomitant]
     Active Substance: FENTANYL
  5. IBUPROFEN. [Concomitant]
     Active Substance: IBUPROFEN
  6. SULFAMETHOXAZOLE-TRIMETHOPRIM (SMZ) [Suspect]
     Active Substance: SULFAMETHOXAZOLE\TRIMETHOPRIM
     Indication: INFECTION
     Dosage: 2 DOUBLE-STRENGTH TABLETS
     Route: 048
     Dates: start: 20141016, end: 20141018
  7. LIDOCAINE. [Concomitant]
     Active Substance: LIDOCAINE
  8. BUPIVACAINE [Concomitant]
     Active Substance: BUPIVACAINE

REACTIONS (2)
  - Drug intolerance [None]
  - Nausea [None]

NARRATIVE: CASE EVENT DATE: 20141018
